FAERS Safety Report 19169129 (Version 1)
Quarter: 2021Q2

REPORT INFORMATION
  Report Type: Spontaneous
  Country: US (occurrence: US)
  Receive Date: 20210421
  Receipt Date: 20210421
  Transmission Date: 20210717
  Serious: Yes (Other)
  Sender: FDA-Public Use
  Company Number: None

PATIENT
  Sex: Male

DRUGS (1)
  1. ATROVASTATIN [Suspect]
     Active Substance: ATORVASTATIN CALCIUM

REACTIONS (1)
  - Pain in extremity [None]
